FAERS Safety Report 17912969 (Version 1)
Quarter: 2020Q2

REPORT INFORMATION
  Report Type: Spontaneous
  Country: US (occurrence: US)
  Receive Date: 20200618
  Receipt Date: 20200618
  Transmission Date: 20200714
  Serious: No
  Sender: FDA-Public Use
  Company Number: US-SAREPTA THERAPEUTICS INC.-SRP2020-000778

PATIENT
  Age: 14 Year
  Sex: Male

DRUGS (1)
  1. VYONDYS 53 [Suspect]
     Active Substance: GOLODIRSEN
     Indication: MUSCULAR DYSTROPHY
     Dosage: 2950 MG, WEEKLY
     Route: 042
     Dates: start: 20200113

REACTIONS (2)
  - Poor venous access [Unknown]
  - Product dose omission [Unknown]

NARRATIVE: CASE EVENT DATE: 20200602
